FAERS Safety Report 6831271-X (Version None)
Quarter: 2010Q3

REPORT INFORMATION
  Report Type: 
  Country: None (occurrence: None)
  Receive Date: 20100709
  Receipt Date: 20100709
  Transmission Date: 20110219
  Serious: No
  Sender: FDA-Public Use
  Company Number: None

PATIENT
  Age: 80 Year
  Sex: Male
  Weight: 98.2 kg

DRUGS (4)
  1. LINEZOLID [Suspect]
     Indication: INFECTION
     Dates: start: 20100617
  2. LINEZOLID [Suspect]
     Indication: INFECTION
     Dates: start: 20100618
  3. INSULIN [Concomitant]
  4. ALBUTEROL [Concomitant]

REACTIONS (1)
  - PLATELET COUNT DECREASED [None]
